FAERS Safety Report 25204595 (Version 3)
Quarter: 2025Q2

REPORT INFORMATION
  Report Type: Report from Study
  Country: CA (occurrence: CA)
  Receive Date: 20250416
  Receipt Date: 20250512
  Transmission Date: 20250717
  Serious: Yes (Hospitalization, Other)
  Sender: TAKEDA
  Company Number: CA-TAKEDA-2025TUS009528

PATIENT
  Sex: Female

DRUGS (4)
  1. VEDOLIZUMAB [Suspect]
     Active Substance: VEDOLIZUMAB
     Indication: Crohn^s disease
     Dates: start: 20160720, end: 20170728
  2. VEDOLIZUMAB [Suspect]
     Active Substance: VEDOLIZUMAB
  3. CIPRO [Concomitant]
     Active Substance: CIPROFLOXACIN HYDROCHLORIDE
  4. FLAGYL [Concomitant]
     Active Substance: METRONIDAZOLE\METRONIDAZOLE HYDROCHLORIDE

REACTIONS (6)
  - Intestinal stenosis [Recovering/Resolving]
  - Malaise [Unknown]
  - Fistula [Unknown]
  - Drug ineffective [Unknown]
  - Diarrhoea [Unknown]
  - Abdominal pain [Unknown]
